FAERS Safety Report 15110710 (Version 6)
Quarter: 2018Q4

REPORT INFORMATION
  Report Type: Spontaneous
  Country: FR (occurrence: FR)
  Receive Date: 20180705
  Receipt Date: 20180917
  Transmission Date: 20190204
  Serious: Yes (Hospitalization)
  Sender: FDA-Public Use
  Company Number: FR-PFIZER INC-2018265734

PATIENT
  Age: 86 Year
  Sex: Male
  Weight: 55 kg

DRUGS (14)
  1. KARDEGIC [Concomitant]
     Active Substance: ASPIRIN DL-LYSINE
     Dosage: 75 MG, UNK (SACHET)
  2. FUMAFER [Concomitant]
     Active Substance: FERROUS FUMARATE
     Dosage: UNK
  3. RAMIPRIL. [Suspect]
     Active Substance: RAMIPRIL
     Indication: HYPERTENSION
     Dosage: 2.5 MG, QD
     Route: 048
     Dates: end: 20180607
  4. TAHOR [Concomitant]
     Active Substance: ATORVASTATIN CALCIUM
     Dosage: UNK
  5. MIDAZOLAM [Suspect]
     Active Substance: MIDAZOLAM HYDROCHLORIDE
     Indication: AGITATION
     Dosage: 0.3 MG, Q1HR
     Route: 048
     Dates: start: 20180530, end: 20180607
  6. UROREC [Suspect]
     Active Substance: SILODOSIN
     Indication: BENIGN PROSTATIC HYPERPLASIA
     Dosage: 1 DF, 1X/DAY
     Route: 048
     Dates: end: 20180607
  7. PANTOPRAZOLE [Suspect]
     Active Substance: PANTOPRAZOLE
     Indication: PEPTIC ULCER
     Dosage: 40 MG, QD
     Route: 048
     Dates: end: 20180607
  8. PAROXETINE. [Suspect]
     Active Substance: PAROXETINE
     Indication: ANXIETY
     Dosage: 20 MG, QD
     Route: 048
     Dates: start: 20180420, end: 20180607
  9. DOLIPRANE [Concomitant]
     Active Substance: ACETAMINOPHEN
     Dosage: UNK
  10. ACIDE FOLIQUE [Suspect]
     Active Substance: FOLIC ACID
     Indication: ANAEMIA
     Dosage: 10 MG, QD
     Route: 048
     Dates: end: 20180607
  11. SOLUPRED (PREDNISOLONE SODIUM METAZOATE) [Suspect]
     Active Substance: PREDNISOLONE SODIUM METAZOATE
     Dosage: 2 DF, 1X/DAY
     Route: 048
     Dates: end: 20180607
  12. BISOCE [Concomitant]
     Active Substance: BISOPROLOL
     Dosage: UNK
  13. LERCAN [Concomitant]
     Active Substance: LERCANIDIPINE
     Dosage: UNK
  14. SYMBICORT [Suspect]
     Active Substance: BUDESONIDE\FORMOTEROL FUMARATE DIHYDRATE
     Indication: CHRONIC OBSTRUCTIVE PULMONARY DISEASE
     Dosage: 2 DF, 1X/DAY
     Route: 055
     Dates: end: 20180607

REACTIONS (3)
  - Somnolence [Recovered/Resolved]
  - Confusional state [Recovered/Resolved]
  - Hyponatraemia [Recovered/Resolved]

NARRATIVE: CASE EVENT DATE: 20180607
